FAERS Safety Report 8064185-0 (Version None)
Quarter: 2011Q4

REPORT INFORMATION
  Report Type: 
  Country: None (occurrence: None)
  Receive Date: 20111221
  Receipt Date: 20110404
  Transmission Date: 20120403
  Serious: Yes (Other)
  Sender: FDA-Public Use
  Company Number: 2011S1000030

PATIENT
  Age: 80 Year
  Sex: Male
  Weight: 89.3586 kg

DRUGS (11)
  1. BENICAR [Concomitant]
  2. COLCHICINE [Concomitant]
  3. ASPIRIN [Concomitant]
  4. CLARITIN [Concomitant]
  5. INDOMETHACIN [Concomitant]
  6. MULTI-VITAMIN [Concomitant]
  7. SOLU-CORTEF [Concomitant]
  8. KRYSTEXXA [Suspect]
     Indication: GOUT
     Dosage: 8 MG/ML;X1; IV
     Route: 042
     Dates: start: 20110306, end: 20110306
  9. KRYSTEXXA [Suspect]
     Indication: GOUT
     Dosage: 8 MG/ML;X1; IV
     Route: 042
     Dates: start: 20110302, end: 20110302
  10. KRYSTEXXA [Suspect]
     Indication: GOUT
     Dosage: 8 MG/ML;X1; IV
     Route: 042
     Dates: start: 20110331, end: 20110331
  11. TENORMIN [Concomitant]

REACTIONS (1)
  - INFUSION RELATED REACTION [None]
